FAERS Safety Report 9091136 (Version 1)
Quarter: 2013Q1

REPORT INFORMATION
  Report Type: Report from Study
  Country: US (occurrence: US)
  Receive Date: 20130201
  Receipt Date: 20130201
  Transmission Date: 20140127
  Serious: No
  Sender: FDA-Public Use
  Company Number: US-ABBOTT-13P-163-1030402-00

PATIENT
  Sex: Female
  Weight: 67.65 kg

DRUGS (1)
  1. HUMIRA [Suspect]
     Indication: PSORIATIC ARTHROPATHY
     Dates: start: 2004

REACTIONS (2)
  - Device malfunction [Unknown]
  - Injection site pain [Not Recovered/Not Resolved]
